FAERS Safety Report 5232633-7 (Version None)
Quarter: 2007Q1

REPORT INFORMATION
  Report Type: 
  Country: None (occurrence: None)
  Receive Date: 20070207
  Receipt Date: 20070124
  Transmission Date: 20070707
  Serious: Yes (Other)
  Sender: FDA-Public Use
  Company Number: PT-ROCHE-480009

PATIENT
  Age: 43 Year
  Sex: Female
  Weight: 82 kg

DRUGS (1)
  1. ROCEPHIN [Suspect]
     Indication: SURGERY
     Route: 042
     Dates: start: 20030615

REACTIONS (2)
  - BRONCHOSPASM [None]
  - STRIDOR [None]
